FAERS Safety Report 4585282-8 (Version None)
Quarter: 2005Q1

REPORT INFORMATION
  Report Type: 
  Country: None (occurrence: None)
  Receive Date: 20050214
  Receipt Date: 20050128
  Transmission Date: 20050727
  Serious: Yes (Disabling)
  Sender: FDA-Public Use
  Company Number: 2005AP00024

PATIENT
  Age: 73 Year
  Sex: Female

DRUGS (11)
  1. ATENOLOL [Suspect]
     Indication: HYPERTENSION
     Dates: start: 20000101
  2. ACCUPRIL [Suspect]
     Indication: HYPERTENSION
     Dosage: 40 MG DAILY PO
     Route: 048
     Dates: start: 20000101
  3. NORVASC [Suspect]
     Indication: HYPERTENSION
     Dosage: 5 MG DAILY PO
     Route: 048
     Dates: start: 20000101
  4. ARTHROTEC [Suspect]
     Indication: OSTEOARTHRITIS
     Dates: start: 20030101
  5. ARTHROTEC [Suspect]
     Indication: OSTEOARTHRITIS
  6. ACETAMINOPHEN W/ CODEINE [Concomitant]
  7. POTASSIUM CHLORIDE [Concomitant]
  8. CALCIUM GLUCONATE [Concomitant]
  9. THYROID TAB [Concomitant]
  10. GALENIC [Concomitant]
  11. TRINITRATE [Concomitant]

REACTIONS (20)
  - ARTHROPATHY [None]
  - ASTHENIA [None]
  - BACK DISORDER [None]
  - BEDRIDDEN [None]
  - BLOOD PRESSURE [None]
  - BODY HEIGHT DECREASED [None]
  - CARDIAC FIBRILLATION [None]
  - CONDITION AGGRAVATED [None]
  - DRUG INEFFECTIVE [None]
  - DYSPNOEA [None]
  - FATIGUE [None]
  - IMPAIRED DRIVING ABILITY [None]
  - MUSCLE SPASMS [None]
  - MUSCULAR WEAKNESS [None]
  - MYALGIA [None]
  - OSTEOARTHRITIS [None]
  - PAIN [None]
  - PALPITATIONS [None]
  - POST POLIO SYNDROME [None]
  - POSTURE ABNORMAL [None]
